FAERS Safety Report 16141062 (Version 1)
Quarter: 2019Q2

REPORT INFORMATION
  Report Type: Spontaneous
  Country: US (occurrence: US)
  Receive Date: 20190330
  Receipt Date: 20190330
  Transmission Date: 20190711
  Serious: Yes (Disabling)
  Sender: FDA-Public Use
  Company Number: None

PATIENT
  Age: 51 Year
  Sex: Female
  Weight: 84.15 kg

DRUGS (12)
  1. VITAMIN C [Concomitant]
     Active Substance: ASCORBIC ACID
  2. AZELASTINE. [Concomitant]
     Active Substance: AZELASTINE HYDROCHLORIDE
  3. ALBUTEROL. [Concomitant]
     Active Substance: ALBUTEROL
  4. CALCIUM+VITAMIN D [Concomitant]
     Active Substance: CALCIUM\VITAMIN D
  5. LISINOPRIL. [Concomitant]
     Active Substance: LISINOPRIL
  6. ROBAXIN [Concomitant]
     Active Substance: METHOCARBAMOL
  7. VITAMIN B12 [Concomitant]
     Active Substance: CYANOCOBALAMIN
  8. PRILOSEC [Concomitant]
     Active Substance: OMEPRAZOLE MAGNESIUM
  9. DELSYM [Concomitant]
     Active Substance: DEXTROMETHORPHAN
  10. AUGMENTIN [Concomitant]
     Active Substance: AMOXICILLIN\CLAVULANATE POTASSIUM
  11. AZELASTINE HCL NASAL SOLUTION (NASAL SPRAY) [Suspect]
     Active Substance: AZELASTINE HYDROCHLORIDE
     Indication: RHINITIS ALLERGIC
     Dosage: ?          QUANTITY:2 SPRAY(S);OTHER ROUTE:NASAL SPRAY (2 SPRAYS IN EACH NOSTRIL)?
     Dates: start: 20190327, end: 20190329
  12. HYCODAN [Concomitant]
     Active Substance: HOMATROPINE METHYLBROMIDE\HYDROCODONE BITARTRATE

REACTIONS (3)
  - Nasal discomfort [None]
  - Application site pain [None]
  - Anosmia [None]

NARRATIVE: CASE EVENT DATE: 20190329
